FAERS Safety Report 7340966-3 (Version None)
Quarter: 2011Q1

REPORT INFORMATION
  Report Type: 
  Country: None (occurrence: None)
  Receive Date: 20110301
  Receipt Date: 20110218
  Transmission Date: 20110831
  Serious: Yes (Other)
  Sender: FDA-Public Use
  Company Number: 10-001298

PATIENT
  Age: 41 Year
  Sex: Female
  Weight: 60.3 kg

DRUGS (11)
  1. INDIGOTIN DISULF [Concomitant]
  2. MEPERIDINE HYDROCHLORIDE [Concomitant]
  3. ESTRACE [Suspect]
     Indication: ATROPHY
     Dosage: 0.5 G NIGHTLY TO EVERY OTHER NIGHT, VAGINAL ; 0.5 G 2-3 TIMES A WEEK, VAGINAL
     Route: 067
     Dates: start: 20091001, end: 20100101
  4. ESTRACE [Suspect]
     Indication: ATROPHY
     Dosage: 0.5 G NIGHTLY TO EVERY OTHER NIGHT, VAGINAL ; 0.5 G 2-3 TIMES A WEEK, VAGINAL
     Route: 067
     Dates: start: 20080227, end: 20091001
  5. THROMBIN LOCAL SOLUTION [Concomitant]
  6. LIDOCAINE (LIDOCAINE HYDROCHLORIDE) [Concomitant]
  7. SIMETHICONE (SIMETHICONE) [Concomitant]
  8. MORPHINE [Concomitant]
  9. KETOROLAC TROMETAMOL (KETOROLAC TROMETHAMINE) [Concomitant]
  10. ONDANSETRON [Concomitant]
  11. ACETAMINOPHEN W/ CODEINE [Concomitant]

REACTIONS (8)
  - BREAST CANCER IN SITU [None]
  - MIGRAINE [None]
  - POST PROCEDURAL HAEMORRHAGE [None]
  - VAGINAL PERFORATION [None]
  - RECTOCELE [None]
  - CYSTOCELE [None]
  - CRYING [None]
  - POST PROCEDURAL COMPLICATION [None]
